FAERS Safety Report 20684577 (Version 1)
Quarter: 2022Q2

REPORT INFORMATION
  Report Type: Spontaneous
  Country: US (occurrence: None)
  Receive Date: 20220405
  Receipt Date: 20220405
  Transmission Date: 20220721
  Serious: Yes (Other)
  Sender: FDA-Public Use
  Company Number: None

PATIENT
  Age: 75 Year
  Sex: Female

DRUGS (13)
  1. AMBRISENTAN [Suspect]
     Active Substance: AMBRISENTAN
     Indication: Pulmonary hypertension
     Dosage: FREQUENCY : DAILY;?
     Route: 048
     Dates: start: 20210217, end: 20220404
  2. TYVASO [Concomitant]
     Active Substance: TREPROSTINIL
  3. TADALAFIL [Concomitant]
     Active Substance: TADALAFIL
  4. ATORVASTATIN [Concomitant]
     Active Substance: ATORVASTATIN
  5. FERROUS SULFATE [Concomitant]
     Active Substance: FERROUS SULFATE
  6. DOXEPIN [Concomitant]
     Active Substance: DOXEPIN
  7. METFORMIN [Concomitant]
     Active Substance: METFORMIN HYDROCHLORIDE
  8. SPIRONOLACTONE [Concomitant]
     Active Substance: SPIRONOLACTONE
  9. TORSEMIDE [Concomitant]
     Active Substance: TORSEMIDE
  10. AMLODIPINE [Concomitant]
     Active Substance: AMLODIPINE BESYLATE
  11. LOSARTAN [Concomitant]
     Active Substance: LOSARTAN
  12. ASPIRIN [Concomitant]
     Active Substance: ASPIRIN
  13. FLONASE [Concomitant]
     Active Substance: FLUTICASONE PROPIONATE

REACTIONS (1)
  - Anaemia [None]

NARRATIVE: CASE EVENT DATE: 20220404
